FAERS Safety Report 5142967-2 (Version None)
Quarter: 2006Q4

REPORT INFORMATION
  Report Type: 
  Country: None (occurrence: None)
  Receive Date: 20061103
  Receipt Date: 20050819
  Transmission Date: 20070319
  Serious: Yes (Hospitalization)
  Sender: FDA-Public Use
  Company Number: PHBS2005CH12071

PATIENT
  Age: 75 Year
  Sex: Male

DRUGS (10)
  1. HYGROTON [Suspect]
     Indication: HYPERTENSION
     Dosage: 75 MG,/ WEEK UNK
     Dates: end: 20050714
  2. VOLTAREN [Suspect]
     Indication: BACK PAIN
     Dosage: 225 MG/ WEEK, UNK
     Dates: end: 20050714
  3. AREDIA [Suspect]
     Indication: CALCIUM METABOLISM DISORDER
     Dosage: 90 MG,/MONTH UNK
     Route: 042
     Dates: start: 20040101, end: 20060601
  4. LAMISIL [Suspect]
     Indication: NAIL TINEA
     Dates: start: 20050601, end: 20050714
  5. BRUFEN [Suspect]
     Indication: BACK PAIN
     Dosage: 1800 MG, /WEEK UNK
     Dates: end: 20050714
  6. ENATEC [Suspect]
     Indication: HYPERTENSION
     Dosage: 10 MG, UNK
     Dates: end: 20050714
  7. NOVALGIN [Suspect]
  8. ALLOPURINOL [Suspect]
     Dosage: 300 MG, UNK
     Dates: end: 20050714
  9. TRYPTIZOL [Concomitant]
     Indication: BACK PAIN
     Dosage: 25 MG, UNK
  10. PARIET [Concomitant]

REACTIONS (10)
  - BLOOD CREATININE INCREASED [None]
  - DEHYDRATION [None]
  - DIARRHOEA [None]
  - FOCAL GLOMERULOSCLEROSIS [None]
  - HYPOVOLAEMIA [None]
  - NEPHROSCLEROSIS [None]
  - RASH MACULAR [None]
  - RENAL FAILURE ACUTE [None]
  - RENAL FAILURE CHRONIC [None]
  - VOMITING [None]
